FAERS Safety Report 8695072 (Version 2)
Quarter: 2013Q4

REPORT INFORMATION
  Report Type: Spontaneous
  Country: US (occurrence: US)
  Receive Date: 20120731
  Receipt Date: 20131101
  Transmission Date: 20140711
  Serious: No
  Sender: FDA-Public Use
  Company Number: US-009507513-1207USA008099

PATIENT
  Age: 89 Year
  Sex: Female

DRUGS (4)
  1. PROVENTIL [Suspect]
     Indication: PNEUMONIA
     Dosage: 90 MICROGRAM, TID
     Dates: start: 20120706
  2. METFORMIN [Concomitant]
  3. LISINOPRIL [Concomitant]
  4. HYDROCHLOROTHIAZIDE [Concomitant]

REACTIONS (2)
  - Drug ineffective [Not Recovered/Not Resolved]
  - Product quality issue [Unknown]
